FAERS Safety Report 4878048-2 (Version None)
Quarter: 2006Q1

REPORT INFORMATION
  Report Type: 
  Country: None (occurrence: None)
  Receive Date: 20060110
  Receipt Date: 20051228
  Transmission Date: 20060701
  Serious: No
  Sender: FDA-Public Use
  Company Number: 2005169918

PATIENT
  Sex: Male

DRUGS (1)
  1. VFEND [Suspect]
     Indication: MENINGITIS CRYPTOCOCCAL
     Dosage: SEE IMAGE
     Route: 042

REACTIONS (2)
  - DISEASE RECURRENCE [None]
  - MENINGITIS CRYPTOCOCCAL [None]
